FAERS Safety Report 7571045-8 (Version None)
Quarter: 2011Q2

REPORT INFORMATION
  Report Type: 
  Country: None (occurrence: None)
  Receive Date: 20110624
  Receipt Date: 20110615
  Transmission Date: 20111010
  Serious: Yes (Other)
  Sender: FDA-Public Use
  Company Number: US-ROCHE-783841

PATIENT
  Sex: Male
  Weight: 65 kg

DRUGS (14)
  1. ENBREL [Concomitant]
  2. PROTONIX [Concomitant]
  3. CELLCEPT [Suspect]
     Indication: BONE MARROW TRANSPLANT
     Route: 048
     Dates: start: 20110301
  4. ATROVENT [Concomitant]
  5. HYDROMORPHONE HCL [Concomitant]
  6. PROGRAF [Concomitant]
  7. ACYCLOVIR [Concomitant]
  8. ALBUTEROL SULFATE AUTOHALER [Concomitant]
  9. HYDRALAZINE HCL [Concomitant]
  10. INSULIN [Concomitant]
     Dosage: INSULIN DRIP
  11. LORAZEPAM [Concomitant]
  12. CEFEPIME [Concomitant]
  13. METHYLPREDNISOLONE [Concomitant]
  14. CELLCEPT [Suspect]
     Dosage: SWITCHED FROM ORALLY TO INTRAVENOUS
     Route: 042

REACTIONS (1)
  - IDIOPATHIC PNEUMONIA SYNDROME [None]
